FAERS Safety Report 17483872 (Version 1)
Quarter: 2020Q1

REPORT INFORMATION
  Report Type: Spontaneous
  Country: US (occurrence: US)
  Receive Date: 20200219
  Receipt Date: 20200219
  Transmission Date: 20200409
  Serious: No
  Sender: FDA-Public Use
  Company Number: None

PATIENT
  Age: 60 Year
  Sex: Female

DRUGS (9)
  1. MELOXICAM. [Concomitant]
     Active Substance: MELOXICAM
  2. FISH OIL [Concomitant]
     Active Substance: FISH OIL
  3. ESTRADIOL. [Concomitant]
     Active Substance: ESTRADIOL
  4. LOSARTAN POTASSIUM. [Concomitant]
     Active Substance: LOSARTAN POTASSIUM
  5. RANITIDINE. [Suspect]
     Active Substance: RANITIDINE
     Indication: GASTROOESOPHAGEAL REFLUX DISEASE
     Dosage: ?          QUANTITY:30;OTHER FREQUENCY:1 TABLET EVERYDAY;?
     Route: 048
     Dates: start: 20200120
  6. VITAMIN D3 [Concomitant]
     Active Substance: CHOLECALCIFEROL
  7. CYCLOBENZAPRINE. [Concomitant]
     Active Substance: CYCLOBENZAPRINE
  8. ONE A DAY WOMEN^S [Concomitant]
     Active Substance: MINERALS\VITAMINS
  9. METHYLPREDNISOLONE. [Concomitant]
     Active Substance: METHYLPREDNISOLONE

REACTIONS (4)
  - Headache [None]
  - Musculoskeletal pain [None]
  - Pain in extremity [None]
  - Constipation [None]

NARRATIVE: CASE EVENT DATE: 20200120
